FAERS Safety Report 25791391 (Version 1)
Quarter: 2025Q3

REPORT INFORMATION
  Report Type: Spontaneous
  Country: US (occurrence: None)
  Receive Date: 20250911
  Receipt Date: 20250911
  Transmission Date: 20251021
  Serious: Yes (Disabling)
  Sender: FDA-CTU
  Company Number: None

PATIENT
  Age: 75 Year
  Sex: Female
  Weight: 47.17 kg

DRUGS (8)
  1. LEQVIO [Suspect]
     Active Substance: INCLISIRAN SODIUM
     Indication: Low density lipoprotein increased
     Dates: start: 20250721, end: 20250721
  2. PROLIA [Concomitant]
     Active Substance: DENOSUMAB
  3. SYNTHROID [Concomitant]
     Active Substance: LEVOTHYROXINE SODIUM
  4. Triamcinolone Acetonide Crm 0.1% [Concomitant]
  5. ASPIRIN [Concomitant]
     Active Substance: ASPIRIN
  6. VITAMIN D3 [Concomitant]
     Active Substance: CHOLECALCIFEROL
  7. Biotin gummies [Concomitant]
  8. Collagen Peptides [Concomitant]

REACTIONS (2)
  - Hypersensitivity [None]
  - Arthralgia [None]
